FAERS Safety Report 18908860 (Version 1)
Quarter: 2021Q1

REPORT INFORMATION
  Report Type: Spontaneous
  Country: US (occurrence: US)
  Receive Date: 20210217
  Receipt Date: 20210217
  Transmission Date: 20210420
  Serious: Yes (Other)
  Sender: FDA-Public Use
  Company Number: None

PATIENT
  Sex: Male

DRUGS (2)
  1. CROMOLYN [Suspect]
     Active Substance: CROMOLYN
  2. OLOPATADINE. [Suspect]
     Active Substance: OLOPATADINE

REACTIONS (1)
  - Therapy non-responder [None]
